FAERS Safety Report 9689282 (Version 1)
Quarter: 2013Q4

REPORT INFORMATION
  Report Type: Spontaneous
  Country: US (occurrence: US)
  Receive Date: 20131114
  Receipt Date: 20131114
  Transmission Date: 20140711
  Serious: Yes (Hospitalization)
  Sender: FDA-Public Use
  Company Number: US-TARO-2013P1020820

PATIENT
  Age: 63 Year
  Sex: Female

DRUGS (4)
  1. LAMOTRIGINE TABLETS 25 MG [Suspect]
     Dates: start: 201104
  2. LAMOTRIGINE TABLETS 25 MG [Suspect]
  3. LAMOTRIGINE TABLETS 25 MG [Suspect]
  4. LAMOTRIGINE TABLETS 25 MG [Suspect]

REACTIONS (12)
  - Renal failure acute [Unknown]
  - Headache [Unknown]
  - Nausea [Unknown]
  - Asthenia [Unknown]
  - Terminal state [Unknown]
  - Atypical pneumonia [Unknown]
  - Alopecia [Unknown]
  - Skin exfoliation [Unknown]
  - Rash [Unknown]
  - Pyrexia [Unknown]
  - Local swelling [Unknown]
  - Cheilitis [Unknown]
